FAERS Safety Report 8277689-2 (Version None)
Quarter: 2012Q2

REPORT INFORMATION
  Report Type: 
  Country: None (occurrence: None)
  Receive Date: 20120412
  Receipt Date: 20120410
  Transmission Date: 20120825
  Serious: Yes (Hospitalization)
  Sender: FDA-Public Use
  Company Number: US-PFIZER INC-2012058919

PATIENT
  Sex: Male
  Weight: 90.703 kg

DRUGS (6)
  1. CHANTIX [Suspect]
     Indication: SMOKING CESSATION THERAPY
     Dosage: 0.5 MG, 1X/DAY
     Route: 048
     Dates: start: 20110201, end: 20110301
  2. LORTAB [Concomitant]
     Indication: PAIN
     Dosage: UNK
  3. LISINOPRIL [Concomitant]
     Indication: HYPERTENSION
     Dosage: UNK
  4. LEXAPRO [Concomitant]
     Indication: DEPRESSION
     Dosage: UNK
  5. SIMVASTATIN [Concomitant]
     Indication: BLOOD CHOLESTEROL INCREASED
     Dosage: UNK
  6. XANAX [Concomitant]
     Indication: DEPRESSION
     Dosage: UNK

REACTIONS (4)
  - COUGH [None]
  - LABORATORY TEST ABNORMAL [None]
  - LUNG DISORDER [None]
  - DYSPNOEA [None]
